FAERS Safety Report 12747568 (Version 1)
Quarter: 2016Q3

REPORT INFORMATION
  Report Type: Spontaneous
  Country: US (occurrence: US)
  Receive Date: 20160915
  Receipt Date: 20160915
  Transmission Date: 20161109
  Serious: No
  Sender: FDA-Public Use
  Company Number: US-JAZZ-2016-US-009807

PATIENT
  Sex: Female

DRUGS (23)
  1. WELLBUTRIN SR [Concomitant]
     Active Substance: BUPROPION HYDROCHLORIDE
     Dosage: 3 G, BID
     Route: 048
     Dates: start: 201511, end: 201602
  2. PROVIGIL [Concomitant]
     Active Substance: MODAFINIL
  3. CLONAZEPAM. [Concomitant]
     Active Substance: CLONAZEPAM
  4. FLUOCINONIDE. [Concomitant]
     Active Substance: FLUOCINONIDE
  5. MELOXICAM. [Concomitant]
     Active Substance: MELOXICAM
  6. HUMALOG [Concomitant]
     Active Substance: INSULIN LISPRO
  7. IMIPRAMINE HCL [Concomitant]
     Active Substance: IMIPRAMINE HYDROCHLORIDE
  8. HYDROCHLOROTHIAZIDE. [Concomitant]
     Active Substance: HYDROCHLOROTHIAZIDE
  9. LANSOPRAZOLE DR [Concomitant]
  10. REMICADE [Concomitant]
     Active Substance: INFLIXIMAB
  11. LYRICA [Concomitant]
     Active Substance: PREGABALIN
  12. CLINDAMYCIN [Concomitant]
     Active Substance: CLINDAMYCIN\CLINDAMYCIN PHOSPHATE
  13. PERCOCET [Concomitant]
     Active Substance: ACETAMINOPHEN\OXYCODONE HYDROCHLORIDE
  14. SIMVASTATIN. [Concomitant]
     Active Substance: SIMVASTATIN
  15. WELLBUTRIN SR [Concomitant]
     Active Substance: BUPROPION HYDROCHLORIDE
     Dosage: 4 G, BID
     Route: 048
     Dates: start: 201602
  16. ENBREL [Concomitant]
     Active Substance: ETANERCEPT
  17. VITAMIN D [Concomitant]
     Active Substance: CHOLECALCIFEROL
  18. FUROSEMIDE. [Concomitant]
     Active Substance: FUROSEMIDE
  19. XYREM [Suspect]
     Active Substance: SODIUM OXYBATE
     Indication: NARCOLEPSY
     Dosage: 3 G, BID
     Route: 048
     Dates: start: 201511, end: 2016
  20. ESTRACE [Concomitant]
     Active Substance: ESTRADIOL
  21. LISINOPRIL. [Concomitant]
     Active Substance: LISINOPRIL
  22. XYREM [Suspect]
     Active Substance: SODIUM OXYBATE
     Indication: CATAPLEXY
     Dosage: 4 G, BID
     Route: 048
     Dates: start: 201602
  23. LEVOTHYROXINE. [Concomitant]
     Active Substance: LEVOTHYROXINE

REACTIONS (1)
  - Fibromyalgia [Not Recovered/Not Resolved]
